FAERS Safety Report 7699186-5 (Version None)
Quarter: 2011Q3

REPORT INFORMATION
  Report Type: 
  Country: None (occurrence: None)
  Receive Date: 20110818
  Receipt Date: 20110818
  Transmission Date: 20111222
  Serious: No
  Sender: FDA-Public Use
  Company Number: None

PATIENT
  Age: 69 Year
  Sex: Male

DRUGS (1)
  1. LISINOPRIL [Suspect]
     Dates: start: 20100313, end: 20100416

REACTIONS (4)
  - HEPATITIS CHOLESTATIC [None]
  - HEPATIC NECROSIS [None]
  - LIVER INJURY [None]
  - WEIGHT DECREASED [None]
